FAERS Safety Report 10791510 (Version 2)
Quarter: 2015Q2

REPORT INFORMATION
  Report Type: Spontaneous
  Country: IE (occurrence: IE)
  Receive Date: 20150213
  Receipt Date: 20150415
  Transmission Date: 20150821
  Serious: Yes (Other)
  Sender: FDA-Public Use
  Company Number: IE-GLAXOSMITHKLINE INC.-IE2015GSK013172

PATIENT
  Age: 65 Year
  Sex: Male

DRUGS (5)
  1. VITAMIN B6 [Concomitant]
     Active Substance: PYRIDOXINE HYDROCHLORIDE
  2. COMBODART [Suspect]
     Active Substance: DUTASTERIDE\TAMSULOSIN
     Indication: BENIGN PROSTATIC HYPERPLASIA
     Dosage: UNK
     Dates: start: 20150112
  3. ZINC [Concomitant]
     Active Substance: ZINC\ZINC CHLORIDE
  4. TAMSULOSIN HYDROCHLORIDE. [Suspect]
     Active Substance: TAMSULOSIN HYDROCHLORIDE
     Indication: BENIGN PROSTATIC HYPERPLASIA
     Dosage: UNK
     Dates: start: 201408, end: 201501
  5. SAW PALMETTO [Concomitant]
     Active Substance: SAW PALMETTO

REACTIONS (2)
  - Urinary retention [Unknown]
  - Bladder catheterisation [Unknown]
